FAERS Safety Report 23236225 (Version 5)
Quarter: 2024Q1

REPORT INFORMATION
  Report Type: Spontaneous
  Country: US (occurrence: US)
  Receive Date: 20231128
  Receipt Date: 20240321
  Transmission Date: 20240409
  Serious: No
  Sender: FDA-Public Use
  Company Number: US-GLAXOSMITHKLINE-US2023AMR158071

PATIENT
  Sex: Female

DRUGS (2)
  1. ZEJULA [Suspect]
     Active Substance: NIRAPARIB
     Indication: Ovarian cancer
     Dosage: 200 MG, QD
     Dates: end: 20231117
  2. ZEJULA [Suspect]
     Active Substance: NIRAPARIB
     Dosage: 100 MG,QD
     Route: 048

REACTIONS (5)
  - Paraesthesia [Not Recovered/Not Resolved]
  - Platelet count decreased [Unknown]
  - Memory impairment [Unknown]
  - Abdominal pain [Unknown]
  - Discomfort [Unknown]
